FAERS Safety Report 18159932 (Version 2)
Quarter: 2020Q4

REPORT INFORMATION
  Report Type: Spontaneous
  Country: US (occurrence: US)
  Receive Date: 20200818
  Receipt Date: 20201221
  Transmission Date: 20210113
  Serious: No
  Sender: FDA-Public Use
  Company Number: US-CELLTRION INC.-2020US025073

PATIENT

DRUGS (4)
  1. ATORVASTATIN [Concomitant]
     Active Substance: ATORVASTATIN
  2. TRUXIMA [Suspect]
     Active Substance: RITUXIMAB-ABBS
     Indication: HODGKIN^S DISEASE
     Dosage: 855 MG EVERY 3 MONTHS
     Route: 042
     Dates: start: 20200602
  3. FLOMAX [Concomitant]
     Active Substance: TAMSULOSIN HYDROCHLORIDE
  4. ELIQUIS [Concomitant]
     Active Substance: APIXABAN

REACTIONS (1)
  - Off label use [Unknown]

NARRATIVE: CASE EVENT DATE: 20200602
